FAERS Safety Report 14933952 (Version 5)
Quarter: 2018Q3

REPORT INFORMATION
  Report Type: Report from Study
  Country: CO (occurrence: CO)
  Receive Date: 20180524
  Receipt Date: 20180827
  Transmission Date: 20181010
  Serious: Yes (Other)
  Sender: FDA-Public Use
  Company Number: CO-JNJFOC-20180525397

PATIENT
  Age: 20 Year
  Sex: Male
  Weight: 81 kg

DRUGS (1)
  1. STELARA [Suspect]
     Active Substance: USTEKINUMAB
     Indication: PSORIASIS
     Route: 058
     Dates: start: 20170911

REACTIONS (5)
  - Eye haemorrhage [Unknown]
  - Neoplasm malignant [Not Recovered/Not Resolved]
  - Nasopharyngitis [Unknown]
  - Purulent discharge [Not Recovered/Not Resolved]
  - Psoriasis [Unknown]

NARRATIVE: CASE EVENT DATE: 20171030
